FAERS Safety Report 7751874-8 (Version None)
Quarter: 2011Q3

REPORT INFORMATION
  Report Type: 
  Country: None (occurrence: None)
  Receive Date: 20110914
  Receipt Date: 20110914
  Transmission Date: 20111222
  Serious: Yes (Hospitalization)
  Sender: FDA-Public Use
  Company Number: None

PATIENT
  Sex: Male
  Weight: 88 kg

DRUGS (3)
  1. NEUPOGEN [Suspect]
  2. AZACITIDINE [Suspect]
     Indication: MYELODYSPLASTIC SYNDROME
     Dates: start: 20110815, end: 20110819
  3. PLERIXAFOR [Suspect]

REACTIONS (4)
  - HEADACHE [None]
  - NEUTROPENIA [None]
  - MOUTH ULCERATION [None]
  - PYREXIA [None]
